FAERS Safety Report 10494010 (Version 2)
Quarter: 2014Q4

REPORT INFORMATION
  Report Type: Spontaneous
  Country: US (occurrence: US)
  Receive Date: 20141003
  Receipt Date: 20141111
  Transmission Date: 20150528
  Serious: Yes (Other)
  Sender: FDA-Public Use
  Company Number: US-BIOGENIDEC-2014BI100990

PATIENT
  Age: 66 Year
  Sex: Female

DRUGS (1)
  1. TECFIDERA [Suspect]
     Active Substance: DIMETHYL FUMARATE
     Indication: PRODUCT USED FOR UNKNOWN INDICATION
     Dates: start: 2013, end: 201408

REACTIONS (8)
  - Blood potassium abnormal [Unknown]
  - Weight decreased [Unknown]
  - Cardiac arrest [Recovered/Resolved]
  - Memory impairment [Unknown]
  - Arthritis [Unknown]
  - Faeces soft [Unknown]
  - Gastrointestinal disorder [Unknown]
  - Abdominal pain upper [Unknown]

NARRATIVE: CASE EVENT DATE: 201402
